FAERS Safety Report 7274296-5 (Version None)
Quarter: 2010Q4

REPORT INFORMATION
  Report Type: 
  Country: None (occurrence: None)
  Receive Date: 20101206
  Receipt Date: 20100629
  Transmission Date: 20110411
  Serious: No
  Sender: FDA-Public Use
  Company Number: 2010SP036798

PATIENT
  Sex: Male

DRUGS (11)
  1. SAPHRIS [Suspect]
     Indication: MAJOR DEPRESSION
     Dosage: 5 MG;QD;PO
     Route: 048
  2. ZOLOFT [Concomitant]
  3. ACTOS [Concomitant]
  4. LANTUS [Concomitant]
  5. VICTOZA [Concomitant]
  6. METFORMIN [Concomitant]
  7. TRIAMTERENE AND HYDROCHLOROTHIAZIDE [Concomitant]
  8. LOTREL [Concomitant]
  9. LIPITOR [Concomitant]
  10. LEVOTHYROXINE SODIUM [Concomitant]
  11. FOLATE [Concomitant]

REACTIONS (4)
  - INAPPROPRIATE SCHEDULE OF DRUG ADMINISTRATION [None]
  - INCORRECT ROUTE OF DRUG ADMINISTRATION [None]
  - MICTURITION URGENCY [None]
  - UNDERDOSE [None]
